FAERS Safety Report 9286121 (Version 2)
Quarter: 2013Q2

REPORT INFORMATION
  Report Type: Spontaneous
  Country: JP (occurrence: JP)
  Receive Date: 20130513
  Receipt Date: 20130619
  Transmission Date: 20140414
  Serious: Yes (Hospitalization, Other)
  Sender: FDA-Public Use
  Company Number: JP-009507513-1305JPN006535

PATIENT
  Age: 84 Year
  Sex: Female
  Weight: 40 kg

DRUGS (12)
  1. BRIDION INTRAVENOUS 200MG [Suspect]
     Dosage: 200 MG, QD
     Route: 065
     Dates: start: 20130424, end: 20130424
  2. PROPOFOL [Suspect]
     Indication: INDUCTION OF ANAESTHESIA
     Dosage: DAILY DOSE UNKNOWN
     Route: 065
     Dates: start: 20130424, end: 20130424
  3. ESLAX [Concomitant]
     Dosage: DAILY DOSE UNKNOWN
     Route: 065
     Dates: start: 20130424, end: 20130424
  4. XYLOCAINE [Concomitant]
     Dosage: DAILY DOSE UNKNOWN
     Route: 061
     Dates: start: 20130424, end: 20130424
  5. FENTANYL [Concomitant]
     Dosage: DAILY DOSE UNKNOWN
     Route: 065
     Dates: start: 20130424, end: 20130424
  6. REMIFENTANIL HYDROCHLORIDE [Concomitant]
     Dosage: DAILY DOSE UNKNOWN
     Route: 065
     Dates: start: 20130424, end: 20130424
  7. NOREPINEPHRINE [Concomitant]
     Dosage: DAILY DOSE UNKNOWN
     Dates: start: 20130424, end: 20130424
  8. CEFMETAZOLE SODIUM [Concomitant]
     Dosage: 1 G, BID
     Route: 065
     Dates: start: 20130424, end: 20130424
  9. MORPHINE [Concomitant]
     Dosage: DAILY DOSE UNKNOWN
     Route: 008
     Dates: start: 20130424, end: 20130424
  10. ROPIVACAINE HYDROCHLORIDE [Concomitant]
     Dosage: DAILY DOSE UNKNOWN
     Route: 008
     Dates: start: 20130424, end: 20130424
  11. PHYSIO 140 [Concomitant]
     Dosage: DAILY DOSE UNKNOWN
     Route: 041
     Dates: start: 20130424, end: 20130424
  12. HESPANDER [Concomitant]
     Dosage: DAILY DOSE UNKNOWN
     Route: 041
     Dates: start: 20130424, end: 20130424

REACTIONS (1)
  - Hyperthermia malignant [Recovered/Resolved]
